FAERS Safety Report 8810243 (Version 1)
Quarter: 2012Q4

REPORT INFORMATION
  Report Type: 
  Country: US (occurrence: US)
  Receive Date: 20120926
  Receipt Date: 20120926
  Transmission Date: 20130627
  Serious: No
  Sender: FDA-Public Use
  Company Number: US-009507513-1209USA009333

PATIENT
  Sex: Female

DRUGS (3)
  1. VICTRELIS [Suspect]
     Indication: HEPATITIS C
     Dosage: 800 mg, tid
     Route: 048
     Dates: start: 201208
  2. PEGASYS [Concomitant]
     Dosage: 180 Microgram, qw
  3. RIBASPHERE [Concomitant]
     Dosage: 400 mg, bid

REACTIONS (1)
  - Fatigue [Unknown]
